FAERS Safety Report 6120607-3 (Version None)
Quarter: 2009Q1

REPORT INFORMATION
  Report Type: 
  Country: None (occurrence: None)
  Receive Date: 20090312
  Receipt Date: 20090312
  Transmission Date: 20090719
  Serious: No
  Sender: FDA-Public Use
  Company Number: None

PATIENT
  Age: 55 Year
  Sex: Female

DRUGS (2)
  1. CITALOPRAM HYDROBROMIDE [Suspect]
     Indication: DEPRESSION
     Dosage: 1 TABLET DAILY BY MOUTH
     Route: 048
     Dates: start: 20090214, end: 20090302
  2. CITALOPRAM HYDROBROMIDE [Suspect]
     Indication: INSOMNIA
     Dosage: 1 TABLET DAILY BY MOUTH
     Route: 048
     Dates: start: 20090214, end: 20090302

REACTIONS (3)
  - DRUG INEFFECTIVE [None]
  - INSOMNIA [None]
  - PRODUCT QUALITY ISSUE [None]
